FAERS Safety Report 8191941-0 (Version None)
Quarter: 2012Q1

REPORT INFORMATION
  Report Type: 
  Country: None (occurrence: None)
  Receive Date: 20120307
  Receipt Date: 20120301
  Transmission Date: 20120608
  Serious: Yes (Death)
  Sender: FDA-Public Use
  Company Number: PHHY2012BD018554

PATIENT
  Age: 100 Year
  Sex: Male

DRUGS (1)
  1. EXELON [Suspect]
     Indication: DEMENTIA
     Dosage: 3 MG, UNK
     Route: 048
     Dates: start: 20100101, end: 20100701

REACTIONS (1)
  - PNEUMONIA [None]
